FAERS Safety Report 5794835-0 (Version None)
Quarter: 2008Q2

REPORT INFORMATION
  Report Type: 
  Country: None (occurrence: None)
  Receive Date: 20080630
  Receipt Date: 20080624
  Transmission Date: 20081010
  Serious: Yes (Other)
  Sender: FDA-Public Use
  Company Number: B0526244A

PATIENT
  Sex: Female

DRUGS (5)
  1. PAROXETINE HCL [Suspect]
     Indication: DEPRESSION
     Route: 065
     Dates: start: 20070101
  2. ARIPIPRAZOLE [Suspect]
     Indication: DRUG USE FOR UNKNOWN INDICATION
     Route: 065
     Dates: start: 20080601, end: 20080601
  3. CLOZAPINE [Suspect]
     Indication: SCHIZOPHRENIA
     Route: 065
     Dates: end: 20080601
  4. OMEPRAZOLE [Suspect]
     Indication: ILL-DEFINED DISORDER
     Route: 065
     Dates: end: 20080601
  5. VALPROIC ACID [Concomitant]
     Route: 065

REACTIONS (3)
  - NEUTROPENIA [None]
  - SALIVARY HYPERSECRETION [None]
  - SOMNOLENCE [None]
